FAERS Safety Report 22608868 (Version 4)
Quarter: 2023Q2

REPORT INFORMATION
  Report Type: Report from Study
  Country: AE (occurrence: None)
  Receive Date: 20230616
  Receipt Date: 20230630
  Transmission Date: 20230722
  Serious: Yes (Hospitalization)
  Sender: FDA-Public Use
  Company Number: 2023A132930

PATIENT
  Age: 61 Year
  Sex: Female
  Weight: 63 kg

DRUGS (4)
  1. CILGAVIMAB\TIXAGEVIMAB [Suspect]
     Active Substance: CILGAVIMAB\TIXAGEVIMAB
     Indication: COVID-19
     Dosage: 6 ML
     Route: 030
     Dates: start: 20230303
  2. AMLODIPINE/CHLORTALIDONE/LOSARTAN [Concomitant]
     Indication: Hypertension
     Route: 048
     Dates: start: 20150101
  3. GLICLAZIDE [Concomitant]
     Active Substance: GLICLAZIDE
     Indication: Diabetes mellitus
     Route: 048
     Dates: start: 20180101
  4. TAPDIN [Concomitant]
     Indication: Hyperthyroidism
     Route: 048
     Dates: start: 20150101

REACTIONS (2)
  - Diarrhoea [Recovered/Resolved]
  - COVID-19 [Recovered/Resolved]

NARRATIVE: CASE EVENT DATE: 20230519
